FAERS Safety Report 7929726-X (Version None)
Quarter: 2011Q4

REPORT INFORMATION
  Report Type: 
  Country: None (occurrence: None)
  Receive Date: 20111121
  Receipt Date: 20111111
  Transmission Date: 20120403
  Serious: Yes (Other)
  Sender: FDA-Public Use
  Company Number: MX-JNJFOC-20111107024

PATIENT
  Age: 42 Year
  Sex: Female
  Weight: 68 kg

DRUGS (6)
  1. ACTRON (IBUPROFEN) [Concomitant]
     Indication: PAIN
     Dates: start: 20111102
  2. RIVAROXABAN [Suspect]
     Indication: LIPECTOMY
     Route: 048
     Dates: start: 20111102, end: 20111102
  3. RIVAROXABAN [Suspect]
     Route: 048
     Dates: start: 20111104, end: 20111104
  4. AVELOX [Concomitant]
     Indication: INFECTION PROPHYLAXIS
     Dates: start: 20111102, end: 20111108
  5. RIVAROXABAN [Suspect]
     Route: 048
     Dates: start: 20111104, end: 20111104
  6. RIVAROXABAN [Suspect]
     Indication: THROMBOSIS PROPHYLAXIS
     Route: 048
     Dates: start: 20111102, end: 20111102

REACTIONS (2)
  - RESPIRATORY DISTRESS [None]
  - UNEVALUABLE EVENT [None]
